FAERS Safety Report 24285337 (Version 1)
Quarter: 2024Q3

REPORT INFORMATION
  Report Type: Spontaneous
  Country: FR (occurrence: FR)
  Receive Date: 20240905
  Receipt Date: 20240905
  Transmission Date: 20241016
  Serious: Yes (Other)
  Sender: AUROBINDO
  Company Number: FR-AFSSAPS-CN2024000819

PATIENT
  Age: 71 Year
  Sex: Male

DRUGS (3)
  1. CIPROFLOXACIN [Suspect]
     Active Substance: CIPROFLOXACIN
     Indication: Cystitis klebsiella
     Dosage: 1500 MILLIGRAM, ONCE A DAY
     Route: 048
     Dates: start: 20240704, end: 20240718
  2. INVANZ [Concomitant]
     Active Substance: ERTAPENEM SODIUM
     Indication: Cystitis klebsiella
     Dosage: 1 GRAM, ONCE A DAY, (1G/J)
     Route: 042
     Dates: start: 20240711, end: 20240809
  3. TEMOCILLIN [Concomitant]
     Active Substance: TEMOCILLIN
     Indication: Cystitis klebsiella
     Dosage: 6 GRAM, ONCE A DAY
     Route: 042
     Dates: start: 20240628, end: 20240711

REACTIONS (1)
  - Muscle rupture [Recovered/Resolved]

NARRATIVE: CASE EVENT DATE: 20240717
